FAERS Safety Report 7456713-0 (Version None)
Quarter: 2011Q2

REPORT INFORMATION
  Report Type: 
  Country: None (occurrence: None)
  Receive Date: 20110503
  Receipt Date: 20100525
  Transmission Date: 20111010
  Serious: No
  Sender: FDA-Public Use
  Company Number: US-SANOFI-AVENTIS-2010SA030162

PATIENT
  Sex: Female

DRUGS (4)
  1. LANTUS [Suspect]
  2. ACTOS [Concomitant]
  3. NOVOLIN 70/30 [Concomitant]
     Dosage: DOSE:20 UNIT(S)
     Route: 065
  4. APIDRA [Suspect]
     Route: 058

REACTIONS (5)
  - FEELING ABNORMAL [None]
  - SLEEP DISORDER [None]
  - DIZZINESS [None]
  - BLOOD GLUCOSE DECREASED [None]
  - ASTHENIA [None]
